FAERS Safety Report 7984763-4 (Version None)
Quarter: 2011Q4

REPORT INFORMATION
  Report Type: 
  Country: None (occurrence: None)
  Receive Date: 20111216
  Receipt Date: 20111205
  Transmission Date: 20120403
  Serious: Yes (Other)
  Sender: FDA-Public Use
  Company Number: JP-SANOFI-AVENTIS-2011SA022890

PATIENT
  Age: 67 Year
  Sex: Female
  Weight: 50 kg

DRUGS (3)
  1. ALLEGRA [Suspect]
     Indication: URTICARIA
     Route: 048
     Dates: start: 20110408, end: 20110414
  2. RESERPINE [Suspect]
     Indication: URTICARIA
     Route: 048
     Dates: start: 20110408, end: 20110411
  3. ALL OTHER THERAPEUTIC PRODUCTS [Suspect]
     Route: 048
     Dates: start: 20110403

REACTIONS (2)
  - HEPATIC FUNCTION ABNORMAL [None]
  - ALANINE AMINOTRANSFERASE INCREASED [None]
